FAERS Safety Report 23144418 (Version 2)
Quarter: 2023Q4

REPORT INFORMATION
  Report Type: Spontaneous
  Country: US (occurrence: None)
  Receive Date: 20231103
  Receipt Date: 20231124
  Transmission Date: 20240110
  Serious: No
  Sender: FDA-Public Use
  Company Number: US-FARMAPROD-202309-2874

PATIENT
  Age: 80 Year
  Sex: Female

DRUGS (19)
  1. OXERVATE [Suspect]
     Active Substance: CENEGERMIN-BKBJ
     Indication: Neurotrophic keratopathy
     Route: 047
     Dates: start: 20230902, end: 20231027
  2. SOOTHE + COOL MEDSEPTIC [Concomitant]
  3. ARTIFICIAL TEARS [Concomitant]
  4. PREGABALIN [Concomitant]
     Active Substance: PREGABALIN
  5. VALACYCLOVIR [Concomitant]
     Active Substance: VALACYCLOVIR HYDROCHLORIDE
     Route: 048
  6. VITAMIN C [Concomitant]
     Active Substance: ASCORBIC ACID
  7. OFLOXACIN [Concomitant]
     Active Substance: OFLOXACIN
     Dates: start: 20230926
  8. HYDROCHLOROTHIAZIDE [Concomitant]
     Active Substance: HYDROCHLOROTHIAZIDE
  9. ROSUVASTATIN CALCIUM [Concomitant]
     Active Substance: ROSUVASTATIN CALCIUM
  10. METOPROLOL SUCCINATE [Concomitant]
     Active Substance: METOPROLOL SUCCINATE
  11. FAMCICLOVIR [Concomitant]
     Active Substance: FAMCICLOVIR
     Indication: Hepatitis viral
     Route: 048
     Dates: start: 20230420
  12. PRESERVATIVE FREE TEARS [Concomitant]
     Dates: start: 202301
  13. TIMOLOL [Concomitant]
     Active Substance: TIMOLOL
     Indication: Ocular hypertension
     Dates: start: 20230901
  14. COSOPT [Concomitant]
     Active Substance: DORZOLAMIDE HYDROCHLORIDE\TIMOLOL MALEATE
     Indication: Ocular hypertension
     Dates: start: 20230915, end: 20231017
  15. BRIMONIDINE [Concomitant]
     Active Substance: BRIMONIDINE TARTRATE
  16. UNSPECIFIED INGREDIENT [Concomitant]
     Active Substance: UNSPECIFIED INGREDIENT
     Route: 061
  17. TYRVAYA [Concomitant]
     Active Substance: VARENICLINE TARTRATE
     Dates: start: 20230915
  18. PRESERVATIVE FREE EYE DROPS [Concomitant]
  19. REFRESH P.M. [Concomitant]
     Active Substance: MINERAL OIL\PETROLATUM

REACTIONS (6)
  - Keratopathy [Not Recovered/Not Resolved]
  - Therapy partial responder [Unknown]
  - Eye irritation [Recovered/Resolved]
  - Eye pain [Recovered/Resolved]
  - Lacrimation increased [Recovered/Resolved]
  - Corneal deposits [Unknown]

NARRATIVE: CASE EVENT DATE: 20230915
